FAERS Safety Report 7801416-3 (Version None)
Quarter: 2011Q4

REPORT INFORMATION
  Report Type: 
  Country: None (occurrence: None)
  Receive Date: 20111006
  Receipt Date: 20111006
  Transmission Date: 20120403
  Serious: Yes (Hospitalization)
  Sender: FDA-Public Use
  Company Number: None

PATIENT
  Age: 26 Year
  Sex: Male
  Weight: 86.4 kg

DRUGS (6)
  1. THORAZINE [Suspect]
     Indication: MENTAL DISORDER
     Dosage: RECENT
  2. MOM [Concomitant]
  3. ATIVAN [Concomitant]
  4. BENADRYL [Concomitant]
  5. APAP TAB [Concomitant]
  6. MAGNESIUM HYDROXIDE TAB [Concomitant]

REACTIONS (3)
  - SCHIZOPHRENIA [None]
  - NEUROLEPTIC MALIGNANT SYNDROME [None]
  - CATATONIA [None]
